FAERS Safety Report 7344255-2 (Version None)
Quarter: 2011Q1

REPORT INFORMATION
  Report Type: 
  Country: None (occurrence: None)
  Receive Date: 20110310
  Receipt Date: 20100922
  Transmission Date: 20110831
  Serious: No
  Sender: FDA-Public Use
  Company Number: A0882587A

PATIENT
  Age: 78 Year
  Sex: Female

DRUGS (1)
  1. NICORETTE [Suspect]
     Route: 002
     Dates: start: 20100901, end: 20100901

REACTIONS (3)
  - HYPERSENSITIVITY [None]
  - STOMATITIS [None]
  - GLOSSODYNIA [None]
